FAERS Safety Report 7235625-1 (Version None)
Quarter: 2011Q1

REPORT INFORMATION
  Report Type: 
  Country: None (occurrence: None)
  Receive Date: 20110110
  Receipt Date: 20101228
  Transmission Date: 20110831
  Serious: Yes (Other)
  Sender: FDA-Public Use
  Company Number: 2010SP066710

PATIENT

DRUGS (1)
  1. POSACONAZOLE [Suspect]
     Indication: PROPHYLAXIS
     Dosage: 200 MG; TID; PO
     Route: 048

REACTIONS (2)
  - MUCOSAL INFLAMMATION [None]
  - DYSPHAGIA [None]
